FAERS Safety Report 15211553 (Version 1)
Quarter: 2018Q3

REPORT INFORMATION
  Report Type: Spontaneous
  Country: US (occurrence: US)
  Receive Date: 20180702
  Receipt Date: 20180702
  Transmission Date: 20181010
  Serious: No
  Sender: FDA-Public Use
  Company Number: None

PATIENT
  Age: 45 Year
  Sex: Male
  Weight: 89.8 kg

DRUGS (2)
  1. ERTAPENEM. [Suspect]
     Active Substance: ERTAPENEM SODIUM
     Indication: CELLULITIS
     Route: 042
     Dates: start: 20180628, end: 20180628
  2. VANCO 1500MG [Concomitant]
     Dates: start: 20180627

REACTIONS (5)
  - Nausea [None]
  - Hyperhidrosis [None]
  - Feeling hot [None]
  - Vomiting [None]
  - Chills [None]

NARRATIVE: CASE EVENT DATE: 20180628
